FAERS Safety Report 12766019 (Version 1)
Quarter: 2016Q3

REPORT INFORMATION
  Report Type: Spontaneous
  Country: US (occurrence: US)
  Receive Date: 20160920
  Receipt Date: 20160920
  Transmission Date: 20161109
  Serious: No
  Sender: FDA-Public Use
  Company Number: None

PATIENT
  Age: 57 Year
  Sex: Female

DRUGS (11)
  1. METOPROLOL ER [Concomitant]
     Active Substance: METOPROLOL SUCCINATE
  2. PROLIA [Concomitant]
     Active Substance: DENOSUMAB
  3. XANAX [Concomitant]
     Active Substance: ALPRAZOLAM
  4. LANSOPRAZOLE. [Concomitant]
     Active Substance: LANSOPRAZOLE
  5. HUMIRA [Suspect]
     Active Substance: ADALIMUMAB
     Indication: PSORIASIS
     Dosage: OTHER STRENGTH:;OTHER DOSE:;OTHER FREQUENCY:80MGX1 40MG WEEK 2;OTHER ROUTE:
     Route: 058
     Dates: start: 20160907, end: 20160916
  6. VALTREX [Concomitant]
     Active Substance: VALACYCLOVIR HYDROCHLORIDE
  7. CYCLOSPORINE. [Concomitant]
     Active Substance: CYCLOSPORINE
  8. ADDERALL XR [Concomitant]
     Active Substance: AMPHETAMINE ASPARTATE\AMPHETAMINE SULFATE\DEXTROAMPHETAMINE SACCHARATE\DEXTROAMPHETAMINE SULFATE
  9. TRIAMCINOLONE [Concomitant]
     Active Substance: TRIAMCINOLONE
  10. TRAZODONE [Concomitant]
     Active Substance: TRAZODONE HYDROCHLORIDE
  11. ALOE EXTRACT [Concomitant]

REACTIONS (12)
  - Increased appetite [None]
  - Contusion [None]
  - Fatigue [None]
  - Therapy non-responder [None]
  - Joint swelling [None]
  - Abdominal distension [None]
  - Arthralgia [None]
  - Weight increased [None]
  - Flatulence [None]
  - Ear pain [None]
  - Pain [None]
  - Influenza like illness [None]

NARRATIVE: CASE EVENT DATE: 20160916
